FAERS Safety Report 11243410 (Version 1)
Quarter: 2015Q3

REPORT INFORMATION
  Report Type: Spontaneous
  Country: JP (occurrence: JP)
  Receive Date: 20150707
  Receipt Date: 20150707
  Transmission Date: 20151125
  Serious: Yes (Life-Threatening, Hospitalization)
  Sender: FDA-Public Use
  Company Number: JP-JNJFOC-20150215845

PATIENT
  Age: 56 Year
  Sex: Male
  Weight: 57 kg

DRUGS (36)
  1. CALONAL [Concomitant]
     Active Substance: ACETAMINOPHEN
     Route: 065
     Dates: start: 20150126
  2. SPIRONOLACTONE. [Concomitant]
     Active Substance: SPIRONOLACTONE
     Route: 065
     Dates: start: 20150206
  3. METHOTREXATE [Concomitant]
     Active Substance: METHOTREXATE
     Route: 065
     Dates: start: 20141216
  4. MEROPENEM. [Concomitant]
     Active Substance: MEROPENEM
     Route: 065
     Dates: start: 20150125
  5. PREDNISOLONE. [Concomitant]
     Active Substance: PREDNISOLONE
     Route: 065
     Dates: start: 20150129
  6. MIYA-BM [Concomitant]
     Active Substance: CLOSTRIDIUM BUTYRICUM SPORES STRAIN M-55
     Route: 065
     Dates: start: 20150130
  7. LANSOPRAZOLE. [Concomitant]
     Active Substance: LANSOPRAZOLE
     Route: 065
     Dates: start: 20150129
  8. TEPRENONE [Concomitant]
     Active Substance: TEPRENONE
     Route: 065
     Dates: start: 20150205
  9. EPINASTINE HYDROCHLORIDE. [Concomitant]
     Active Substance: EPINASTINE HYDROCHLORIDE
     Route: 065
     Dates: start: 20150205
  10. RINDERON A [Concomitant]
     Active Substance: BETAMETHASONE SODIUM PHOSPHATE\NEOMYCIN SULFATE
     Route: 065
  11. RANIMUSTINE [Concomitant]
     Active Substance: RANIMUSTINE
     Route: 065
     Dates: start: 20141216
  12. CEFTRIAXONE SODIUM. [Concomitant]
     Active Substance: CEFTRIAXONE SODIUM
     Route: 065
     Dates: start: 20150122
  13. FEBURIC [Concomitant]
     Active Substance: FEBUXOSTAT
     Route: 065
     Dates: start: 20150129
  14. FELBINAC [Concomitant]
     Active Substance: FELBINAC
     Route: 065
     Dates: start: 20150205
  15. VINDESINE SULFATE [Concomitant]
     Active Substance: VINDESINE SULFATE
     Route: 065
     Dates: start: 20141216
  16. ETOPOSIDE. [Concomitant]
     Active Substance: ETOPOSIDE
     Route: 065
     Dates: start: 20141216
  17. CEFMETAZOLE SODIUM [Concomitant]
     Active Substance: CEFMETAZOLE SODIUM
     Route: 065
     Dates: start: 20150118
  18. VINCRISTINE SULFATE. [Suspect]
     Active Substance: VINCRISTINE SULFATE
     Indication: ADULT T-CELL LYMPHOMA/LEUKAEMIA
     Route: 042
     Dates: start: 20141216
  19. LOXOMARIN [Concomitant]
     Active Substance: LOXOPROFEN
     Route: 065
     Dates: start: 20150205
  20. FUROSEMIDE. [Concomitant]
     Active Substance: FUROSEMIDE
     Route: 065
     Dates: start: 20150206
  21. FINIBAX [Suspect]
     Active Substance: DORIPENEM MONOHYDRATE
     Indication: FEBRILE NEUTROPENIA
     Dosage: 0.25 G THREE TIMES DAILY
     Route: 042
     Dates: start: 20150203, end: 20150208
  22. ENDOXAN [Suspect]
     Active Substance: CYCLOPHOSPHAMIDE
     Indication: ADULT T-CELL LYMPHOMA/LEUKAEMIA
     Route: 042
     Dates: start: 20141216
  23. PREDNISOLONE. [Suspect]
     Active Substance: PREDNISOLONE
     Indication: ADULT T-CELL LYMPHOMA/LEUKAEMIA
     Route: 048
     Dates: start: 20141216
  24. FILGRASTIM [Concomitant]
     Active Substance: FILGRASTIM
     Route: 065
     Dates: start: 20141118
  25. LEVOFLOXACIN HEMIHYDRATE [Concomitant]
     Active Substance: LEVOFLOXACIN
     Route: 065
  26. DEPAKENE [Concomitant]
     Active Substance: VALPROIC ACID
     Route: 065
     Dates: start: 20150209
  27. EMEND [Concomitant]
     Active Substance: APREPITANT
     Route: 065
     Dates: start: 20150129
  28. BACTRAMIN [Concomitant]
     Active Substance: SULFAMETHOXAZOLE\TRIMETHOPRIM
     Route: 065
     Dates: start: 20150129
  29. CANCIDAS [Concomitant]
     Active Substance: CASPOFUNGIN ACETATE
     Route: 065
     Dates: start: 20141118
  30. SODIUM PICOSULFATE [Concomitant]
     Active Substance: SODIUM PICOSULFATE
     Route: 065
     Dates: start: 20150127
  31. GASCON [Concomitant]
     Active Substance: DIMETHICONE
     Route: 065
     Dates: start: 20150129
  32. LEVETIRACETAM. [Concomitant]
     Active Substance: LEVETIRACETAM
     Route: 065
     Dates: start: 20150209
  33. CYTARABINE. [Concomitant]
     Active Substance: CYTARABINE
     Route: 065
     Dates: start: 20141216
  34. DOXORUBICIN HYDROCHLORIDE. [Suspect]
     Active Substance: DOXORUBICIN HYDROCHLORIDE
     Indication: ADULT T-CELL LYMPHOMA/LEUKAEMIA
     Route: 042
     Dates: start: 20141216
  35. MOSAPRIDE CITRATE [Concomitant]
     Active Substance: MOSAPRIDE CITRATE
     Route: 065
     Dates: start: 20150129
  36. CARBOPLATIN. [Concomitant]
     Active Substance: CARBOPLATIN
     Route: 065
     Dates: start: 20141216

REACTIONS (3)
  - Bone marrow failure [Unknown]
  - Neutrophil count decreased [Unknown]
  - Seizure [Recovered/Resolved with Sequelae]

NARRATIVE: CASE EVENT DATE: 20150208
